FAERS Safety Report 9192079 (Version 1)
Quarter: 2013Q1

REPORT INFORMATION
  Report Type: Spontaneous
  Country: GB (occurrence: None)
  Receive Date: 20130325
  Receipt Date: 20130325
  Transmission Date: 20140127
  Serious: Yes (Hospitalization)
  Sender: FDA-Public Use
  Company Number: 2013-04989

PATIENT
  Age: 61 Year
  Sex: Female

DRUGS (5)
  1. SERTRALINE HYDROCHLORIDE [Suspect]
     Indication: PRODUCT USED FOR UNKNOWN INDICATION
     Route: 048
  2. SERTRALINE HYDROCHLORIDE [Suspect]
     Route: 048
  3. SERTRALINE HYDROCHLORIDE [Suspect]
     Route: 048
  4. ASPIRIN [Suspect]
  5. TICAGRELOR [Suspect]

REACTIONS (7)
  - Dyspepsia [None]
  - Abdominal pain upper [None]
  - Decreased appetite [None]
  - Weight decreased [None]
  - Diarrhoea [None]
  - Faeces discoloured [None]
  - Haemoglobin decreased [None]
